FAERS Safety Report 5578140-3 (Version None)
Quarter: 2007Q4

REPORT INFORMATION
  Report Type: 
  Country: None (occurrence: None)
  Receive Date: 20071227
  Receipt Date: 20071214
  Transmission Date: 20080405
  Serious: Yes (Hospitalization)
  Sender: FDA-Public Use
  Company Number: 2007SP024860

PATIENT
  Age: 73 Year
  Sex: Male

DRUGS (2)
  1. NOXAFIL [Suspect]
     Indication: ASPERGILLOSIS
     Dosage: 200 MG;BID;PO, PO
     Route: 048
     Dates: start: 20070420, end: 20070424
  2. VORICONAZOLE (PREV.) [Concomitant]

REACTIONS (3)
  - GASTROENTERITIS [None]
  - RENAL FAILURE [None]
  - RENAL HYPERTENSION [None]
